FAERS Safety Report 8264201-7 (Version None)
Quarter: 2012Q2

REPORT INFORMATION
  Report Type: 
  Country: None (occurrence: None)
  Receive Date: 20120403
  Receipt Date: 20120328
  Transmission Date: 20120825
  Serious: Yes (Hospitalization, Other)
  Sender: FDA-Public Use
  Company Number: 2012-031185

PATIENT
  Age: 65 Year
  Sex: Female

DRUGS (1)
  1. ASPIRIN [Suspect]
     Indication: THROMBOSIS PROPHYLAXIS
     Dosage: 325 MG, QD, ORAL
     Route: 048

REACTIONS (2)
  - LIVER TRANSPLANT [None]
  - GASTRIC ULCER [None]
